FAERS Safety Report 4390831-9 (Version None)
Quarter: 2004Q3

REPORT INFORMATION
  Report Type: 
  Country: None (occurrence: None)
  Receive Date: 20040706
  Receipt Date: 20040706
  Transmission Date: 20050211
  Serious: Yes (Life-Threatening, Hospitalization)
  Sender: FDA-Public Use
  Company Number: None

PATIENT
  Age: 72 Year
  Sex: Male
  Weight: 56.246 kg

DRUGS (17)
  1. LIPITOR [Suspect]
     Indication: CORONARY ARTERY DISEASE
     Dosage: 1 TAB QHS ORAL
     Route: 048
     Dates: start: 20040101, end: 20040630
  2. LIPITOR [Suspect]
     Indication: HYPERLIPIDAEMIA
     Dosage: 1 TAB QHS ORAL
     Route: 048
     Dates: start: 20040101, end: 20040630
  3. ZETIA [Concomitant]
  4. ZANTAC [Concomitant]
  5. SYNTHROID [Concomitant]
  6. PROSCAR [Concomitant]
  7. PLAVIX [Concomitant]
  8. NITROGLYCERIN [Concomitant]
  9. LASIX [Concomitant]
  10. K-DUR 10 [Concomitant]
  11. IMDUR [Concomitant]
  12. ASPIRIN [Concomitant]
  13. COREG [Concomitant]
  14. CORDARONE [Concomitant]
  15. CAPOTEN [Concomitant]
  16. ATIVAN [Concomitant]
  17. ALLEGRA [Concomitant]

REACTIONS (3)
  - DIFFICULTY IN WALKING [None]
  - FATIGUE [None]
  - MYALGIA [None]
